FAERS Safety Report 5405978-5 (Version None)
Quarter: 2007Q3

REPORT INFORMATION
  Report Type: 
  Country: None (occurrence: None)
  Receive Date: 20070806
  Receipt Date: 20070801
  Transmission Date: 20080115
  Serious: Yes (Other)
  Sender: FDA-Public Use
  Company Number: US-BRISTOL-MYERS SQUIBB COMPANY-12789517

PATIENT
  Age: 61 Year
  Sex: Male
  Weight: 59 kg

DRUGS (4)
  1. CETUXIMAB [Suspect]
     Indication: SQUAMOUS CELL CARCINOMA
     Dosage: INITIATED ON 04-NOV-2004(LD=688MG), 4 COURSES REC'D TO DATE. TOTAL DOSE ADMIN. THIS COURSE=418MG.
     Route: 042
     Dates: start: 20041130, end: 20041130
  2. CISPLATIN [Suspect]
     Indication: SQUAMOUS CELL CARCINOMA
     Dosage: INITIATED ON 09-NOV-2004. 4 DOSES TO DATE. DELAYED 7 DAYS. TOTAL DOSE ADMIN THIS COURSE=50MG
     Route: 042
     Dates: start: 20041130, end: 20041130
  3. RADIATION THERAPY [Suspect]
     Indication: SQUAMOUS CELL CARCINOMA
     Dosage: THERAPY INITAITED ON 09-NOV-2004. EXTERNAL BEAM NOS. TOTAL DOSE (TO DATE): 34 GY.
     Dates: start: 20041203, end: 20041203
  4. AMIFOSTINE [Concomitant]

REACTIONS (4)
  - LEUKOPENIA [None]
  - MUCOSAL INFLAMMATION [None]
  - NEUTROPENIA [None]
  - RASH [None]
